FAERS Safety Report 24882988 (Version 2)
Quarter: 2025Q1

REPORT INFORMATION
  Report Type: Spontaneous
  Country: FR (occurrence: FR)
  Receive Date: 20250124
  Receipt Date: 20250314
  Transmission Date: 20250409
  Serious: No
  Sender: SANOFI AVENTIS
  Company Number: FR-DialogSolutions-SAAVPROD-PI735311-C1

PATIENT
  Age: 78 Year
  Sex: Male

DRUGS (1)
  1. OXALIPLATIN [Suspect]
     Active Substance: OXALIPLATIN
     Indication: Pseudomyxoma peritonei
     Dates: start: 20200114

REACTIONS (1)
  - Off label use [Unknown]

NARRATIVE: CASE EVENT DATE: 20200114
